FAERS Safety Report 5157528-9 (Version None)
Quarter: 2006Q4

REPORT INFORMATION
  Report Type: 
  Country: None (occurrence: None)
  Receive Date: 20061127
  Receipt Date: 20061107
  Transmission Date: 20070319
  Serious: Yes (Life-Threatening, Other)
  Sender: FDA-Public Use
  Company Number: BE-GLAXOSMITHKLINE-B0446126A

PATIENT
  Age: 30 Year
  Sex: Female
  Weight: 68 kg

DRUGS (1)
  1. AUGMENTIN '125' [Suspect]
     Dosage: 1TAB TWICE PER DAY
     Route: 048
     Dates: start: 20061107, end: 20061107

REACTIONS (7)
  - ANAPHYLACTIC REACTION [None]
  - EYELID OEDEMA [None]
  - PARAESTHESIA [None]
  - PRURITUS GENERALISED [None]
  - SHOCK [None]
  - SYNCOPE [None]
  - URTICARIA [None]
